FAERS Safety Report 8516630-1 (Version None)
Quarter: 2012Q2

REPORT INFORMATION
  Report Type: 
  Country: None (occurrence: None)
  Receive Date: 20120406
  Receipt Date: 20080317
  Transmission Date: 20120825
  Serious: Yes (Death)
  Sender: FDA-Public Use
  Company Number: PHEH2008US11548

PATIENT
  Age: 58 Year
  Sex: Female

DRUGS (2)
  1. TASIGNA [Suspect]
     Indication: GASTROINTESTINAL STROMAL TUMOUR
     Dosage: 400 MG, BID, ORAL
     Route: 048
     Dates: start: 20080109, end: 20080120
  2. FENTANYL [Concomitant]

REACTIONS (2)
  - NEOPLASM MALIGNANT [None]
  - METASTATIC NEOPLASM [None]
